FAERS Safety Report 6203740-7 (Version None)
Quarter: 2009Q2

REPORT INFORMATION
  Report Type: 
  Country: None (occurrence: None)
  Receive Date: 20090521
  Receipt Date: 20090511
  Transmission Date: 20091009
  Serious: Yes (Death)
  Sender: FDA-Public Use
  Company Number: 2008AL004021

PATIENT
  Sex: Male

DRUGS (1)
  1. DIGOXIN [Suspect]
     Dosage: 0.125MG, DAILY, PO
     Route: 048

REACTIONS (8)
  - ANHEDONIA [None]
  - ANXIETY [None]
  - ECONOMIC PROBLEM [None]
  - EMOTIONAL DISTRESS [None]
  - FEAR [None]
  - ILL-DEFINED DISORDER [None]
  - MULTIPLE INJURIES [None]
  - PAIN [None]
